FAERS Safety Report 4658418-8 (Version None)
Quarter: 2005Q2

REPORT INFORMATION
  Report Type: 
  Country: None (occurrence: None)
  Receive Date: 20050510
  Receipt Date: 20050510
  Transmission Date: 20051028
  Serious: Yes (Disabling)
  Sender: FDA-Public Use
  Company Number: None

PATIENT
  Age: 45 Year
  Sex: Male
  Weight: 72.5755 kg

DRUGS (1)
  1. BEXTRA [Suspect]
     Indication: SERUM SICKNESS
     Dosage: 20 MG/DAILY
     Dates: start: 20030701, end: 20041201

REACTIONS (1)
  - ARTHRALGIA [None]
